FAERS Safety Report 14139641 (Version 1)
Quarter: 2017Q4

REPORT INFORMATION
  Report Type: Spontaneous
  Country: IT (occurrence: IT)
  Receive Date: 20171029
  Receipt Date: 20171029
  Transmission Date: 20180321
  Serious: Yes (Hospitalization)
  Sender: FDA-Public Use
  Company Number: PHHY2017IT158808

PATIENT
  Age: 33 Year
  Sex: Male

DRUGS (3)
  1. AMOXICILLIN+CLAVULANATE [Suspect]
     Active Substance: AMOXICILLIN\CLAVULANATE POTASSIUM
     Indication: OROPHARYNGEAL PAIN
     Dosage: 1 DF, TOTAL
     Route: 048
     Dates: start: 20110307, end: 20110307
  2. KARVEA [Concomitant]
     Active Substance: IRBESARTAN
     Indication: HYPERTENSION
     Route: 065
  3. BENAGOL [Suspect]
     Active Substance: AMYLMETACRESOL\DICHLOROBENZYL ALCOHOL
     Indication: OROPHARYNGEAL PAIN
     Dosage: 1 DF, TOTAL
     Route: 048
     Dates: start: 20110307, end: 20110307

REACTIONS (5)
  - Tachycardia [Recovered/Resolved]
  - Swelling face [Recovered/Resolved]
  - Erythema [Recovered/Resolved]
  - Atrial fibrillation [Recovered/Resolved]
  - Presyncope [Recovered/Resolved]

NARRATIVE: CASE EVENT DATE: 20110307
